FAERS Safety Report 4438247-0 (Version None)
Quarter: 2004Q3

REPORT INFORMATION
  Report Type: 
  Country: None (occurrence: None)
  Receive Date: 20040728
  Receipt Date: 20040304
  Transmission Date: 20050211
  Serious: No
  Sender: FDA-Public Use
  Company Number: USA040360906

PATIENT
  Age: 10 Year
  Sex: Male
  Weight: 48 kg

DRUGS (2)
  1. STRATTERA [Suspect]
     Indication: ATTENTION DEFICIT/HYPERACTIVITY DISORDER
     Dosage: 18 MG DAY
     Dates: start: 20031001
  2. STRATTERA [Suspect]
     Indication: DEPRESSION
     Dosage: 18 MG DAY
     Dates: start: 20031001

REACTIONS (3)
  - AGITATION [None]
  - EDUCATIONAL PROBLEM [None]
  - WEIGHT DECREASED [None]
